FAERS Safety Report 9528639 (Version 1)
Quarter: 2013Q3

REPORT INFORMATION
  Report Type: Spontaneous
  Country: US (occurrence: US)
  Receive Date: 20130917
  Receipt Date: 20130917
  Transmission Date: 20140515
  Serious: No
  Sender: FDA-Public Use
  Company Number: US-BANPHARM-20120230

PATIENT
  Age: 60 Year
  Sex: Male
  Weight: 72.57 kg

DRUGS (2)
  1. ZYRTEC LIQUID GELS 10 MG [Suspect]
     Indication: RESPIRATORY TRACT CONGESTION
     Dosage: 1DF, ONCE,
     Route: 048
     Dates: start: 20121001, end: 20121001
  2. HYDROCHLOROTHIAZIDE 25 MG [Concomitant]
     Dosage: 1 DF, QD,

REACTIONS (4)
  - Diarrhoea [Recovered/Resolved]
  - Dizziness [Recovered/Resolved]
  - Nausea [Unknown]
  - Somnolence [Recovered/Resolved]
